FAERS Safety Report 10230245 (Version 2)
Quarter: 2014Q2

REPORT INFORMATION
  Report Type: Spontaneous
  Country: US (occurrence: US)
  Receive Date: 20140611
  Receipt Date: 20140623
  Transmission Date: 20141212
  Serious: Yes (Hospitalization, Other)
  Sender: FDA-Public Use
  Company Number: US-BAXTER-2014BAX028955

PATIENT
  Age: 57 Year
  Sex: Female

DRUGS (4)
  1. DIANEAL LOW CALCIUM [Suspect]
     Indication: PERITONEAL DIALYSIS
     Route: 033
  2. DIANEAL LOW CALCIUM [Suspect]
     Indication: RENAL FAILURE CHRONIC
     Route: 033
  3. DIANEAL LOW CALCIUM [Suspect]
     Indication: RENAL FAILURE CHRONIC
     Route: 033
  4. LYRICA [Suspect]
     Indication: NEURALGIA
     Dates: start: 20140515

REACTIONS (6)
  - Neuralgia [Not Recovered/Not Resolved]
  - Peritoneal dialysis complication [Not Recovered/Not Resolved]
  - Fall [Not Recovered/Not Resolved]
  - Drug level increased [Not Recovered/Not Resolved]
  - Aphasia [Not Recovered/Not Resolved]
  - Convulsion [Recovering/Resolving]
